FAERS Safety Report 12094047 (Version 2)
Quarter: 2016Q1

REPORT INFORMATION
  Report Type: Spontaneous
  Country: JP (occurrence: JP)
  Receive Date: 20160219
  Receipt Date: 20160317
  Transmission Date: 20160526
  Serious: No
  Sender: FDA-Public Use
  Company Number: JP-PFIZER INC-2016093106

PATIENT
  Age: 86 Year
  Sex: Female

DRUGS (1)
  1. DALACIN [Suspect]
     Active Substance: CLINDAMYCIN\CLINDAMYCIN PHOSPHATE
     Indication: PNEUMONIA ASPIRATION
     Dosage: 150 MG, 1X/DAY
     Route: 048
     Dates: start: 20160209

REACTIONS (1)
  - Wrong technique in product usage process [Unknown]
